FAERS Safety Report 7998917-4 (Version None)
Quarter: 2011Q4

REPORT INFORMATION
  Report Type: 
  Country: None (occurrence: None)
  Receive Date: 20111221
  Receipt Date: 20111213
  Transmission Date: 20120403
  Serious: Yes (Hospitalization)
  Sender: FDA-Public Use
  Company Number: IT-GLAXOSMITHKLINE-B0765536A

PATIENT
  Sex: Female

DRUGS (4)
  1. ISOPTIN [Suspect]
     Indication: ATRIAL FIBRILLATION
     Dosage: 120MG TWICE PER DAY
     Route: 048
     Dates: start: 20080101, end: 20111105
  2. LASIX [Concomitant]
     Indication: CARDIAC FAILURE
     Route: 048
  3. LANOXIN [Suspect]
     Indication: ATRIAL FIBRILLATION
     Dosage: .25MG PER DAY
     Route: 048
     Dates: start: 20111025, end: 20111105
  4. COUMADIN [Concomitant]
     Indication: CARDIAC DISORDER
     Dosage: 5MG PER DAY
     Route: 048

REACTIONS (3)
  - VOMITING [None]
  - PRESYNCOPE [None]
  - OVERDOSE [None]
